FAERS Safety Report 17164135 (Version 4)
Quarter: 2020Q2

REPORT INFORMATION
  Report Type: Spontaneous
  Country: US (occurrence: US)
  Receive Date: 20191217
  Receipt Date: 20200415
  Transmission Date: 20200713
  Serious: Yes (Hospitalization)
  Sender: FDA-Public Use
  Company Number: US-VERTEX PHARMACEUTICALS-2019-012861

PATIENT
  Age: 2 Year
  Sex: Female

DRUGS (8)
  1. EX-LAX [PHENOLPHTHALEIN] [Concomitant]
     Active Substance: PHENOLPHTHALEIN
  2. FAMOTIDINE. [Concomitant]
     Active Substance: FAMOTIDINE
  3. AQUADEKS PEDIATRIC LIQUID [Concomitant]
     Active Substance: MINERALS\VITAMINS
  4. PULMOZYME [Concomitant]
     Active Substance: DORNASE ALFA
  5. ORKAMBI [Suspect]
     Active Substance: IVACAFTOR\LUMACAFTOR
     Indication: CYSTIC FIBROSIS
     Dosage: 100/125 MG, BID
     Route: 048
     Dates: start: 20190909
  6. ALBUTEROL HFA [Concomitant]
     Active Substance: ALBUTEROL SULFATE
  7. CREON [Concomitant]
     Active Substance: PANCRELIPASE AMYLASE\PANCRELIPASE LIPASE\PANCRELIPASE PROTEASE
  8. SODIUM CHLORIDE. [Concomitant]
     Active Substance: SODIUM CHLORIDE

REACTIONS (4)
  - Mood altered [Unknown]
  - Intestinal obstruction [Unknown]
  - Respiratory syncytial virus infection [Unknown]
  - Infective pulmonary exacerbation of cystic fibrosis [Unknown]

NARRATIVE: CASE EVENT DATE: 20191206
